FAERS Safety Report 8151129-6 (Version None)
Quarter: 2012Q1

REPORT INFORMATION
  Report Type: 
  Country: None (occurrence: None)
  Receive Date: 20120220
  Receipt Date: 20120214
  Transmission Date: 20120608
  Serious: Yes (Hospitalization)
  Sender: FDA-Public Use
  Company Number: US-GLAXOSMITHKLINE-A0959672A

PATIENT
  Age: 59 Year
  Sex: Male
  Weight: 81.8 kg

DRUGS (5)
  1. VICODIN [Concomitant]
  2. VOTRIENT [Suspect]
     Indication: MALIGNANT URINARY TRACT NEOPLASM
     Dosage: 800MG PER DAY
     Route: 048
     Dates: start: 20111102
  3. GLIPIZIDE [Concomitant]
  4. HYDRALAZINE HCL [Concomitant]
  5. ATENOLOL [Concomitant]

REACTIONS (5)
  - YELLOW SKIN [None]
  - HEPATIC ENZYME ABNORMAL [None]
  - PRURITUS [None]
  - BLOOD COUNT ABNORMAL [None]
  - JAUNDICE [None]
